FAERS Safety Report 18252082 (Version 1)
Quarter: 2020Q3

REPORT INFORMATION
  Report Type: Spontaneous
  Country: US (occurrence: US)
  Receive Date: 20200910
  Receipt Date: 20200910
  Transmission Date: 20201103
  Serious: No
  Sender: FDA-Public Use
  Company Number: US-FARMAPROD-202004-0472

PATIENT
  Age: 74 Year
  Sex: Female
  Weight: 54 kg

DRUGS (8)
  1. PRAVASTATIN SODIUM. [Concomitant]
     Active Substance: PRAVASTATIN SODIUM
  2. POTASSIUM [Concomitant]
     Active Substance: POTASSIUM
  3. GABAPENTIN. [Concomitant]
     Active Substance: GABAPENTIN
  4. OXERVATE [Suspect]
     Active Substance: CENEGERMIN-BKBJ
     Route: 047
     Dates: start: 20200330
  5. CYANOCOBALAMIN. [Concomitant]
     Active Substance: CYANOCOBALAMIN
  6. VITAMIN D?400 [Concomitant]
  7. PRESERVISION AREDS [Concomitant]
     Active Substance: MINERALS\VITAMINS
  8. BIOTIN [Concomitant]
     Active Substance: BIOTIN

REACTIONS (7)
  - Ocular hyperaemia [Recovered/Resolved]
  - Herpes zoster [Unknown]
  - Accidental overdose [Recovered/Resolved]
  - Corneal defect [Unknown]
  - Drug ineffective [Unknown]
  - Vision blurred [Unknown]
  - Eye pain [Recovered/Resolved]

NARRATIVE: CASE EVENT DATE: 20200518
